FAERS Safety Report 16946927 (Version 1)
Quarter: 2019Q4

REPORT INFORMATION
  Report Type: Report from Study
  Country: CA (occurrence: CA)
  Receive Date: 20191022
  Receipt Date: 20191022
  Transmission Date: 20200122
  Serious: Yes (Hospitalization, Other)
  Sender: FDA-Public Use
  Company Number: CA-APOPHARMA INC-2019AP022534

PATIENT
  Sex: Male
  Weight: 107 kg

DRUGS (1)
  1. FERRIPROX [Suspect]
     Active Substance: DEFERIPRONE
     Indication: SICKLE CELL DISEASE
     Dosage: 70 MG/KG, QD
     Route: 048
     Dates: start: 20180716

REACTIONS (2)
  - Neuropathy peripheral [Unknown]
  - Delirium [Unknown]
